FAERS Safety Report 6967816-9 (Version None)
Quarter: 2010Q3

REPORT INFORMATION
  Report Type: 
  Country: None (occurrence: None)
  Receive Date: 20100907
  Receipt Date: 20100827
  Transmission Date: 20110219
  Serious: Yes (Other)
  Sender: FDA-Public Use
  Company Number: GB-JNJFOC-20100809295

PATIENT
  Age: 65 Year
  Sex: Female
  Weight: 65 kg

DRUGS (4)
  1. REMICADE [Suspect]
     Indication: PSORIATIC ARTHROPATHY
     Route: 042
  2. DICLOFENAC [Concomitant]
     Route: 048
  3. METFORMIN [Concomitant]
     Route: 048
  4. PREDNISOLONE [Concomitant]

REACTIONS (6)
  - BLOOD PRESSURE DECREASED [None]
  - COLD SWEAT [None]
  - INFUSION RELATED REACTION [None]
  - MALAISE [None]
  - NAUSEA [None]
  - PALLOR [None]
